FAERS Safety Report 4463799-4 (Version None)
Quarter: 2004Q4

REPORT INFORMATION
  Report Type: 
  Country: None (occurrence: None)
  Receive Date: 20041001
  Receipt Date: 20040825
  Transmission Date: 20050328
  Serious: Yes (Death, Other)
  Sender: FDA-Public Use
  Company Number: PHHO2004PE11936

PATIENT
  Age: 85 Year
  Sex: Male

DRUGS (1)
  1. GLEEVEC [Suspect]
     Indication: GASTROINTESTINAL STROMAL TUMOUR
     Dosage: 600 MG, QD
     Route: 048
     Dates: start: 20040806, end: 20040815

REACTIONS (6)
  - DIABETES MELLITUS [None]
  - GASTROINTESTINAL STROMAL TUMOUR [None]
  - MALIGNANT NEOPLASM PROGRESSION [None]
  - METASTASES TO LIVER [None]
  - SEPSIS [None]
  - URINARY TRACT INFECTION [None]
